FAERS Safety Report 22966092 (Version 2)
Quarter: 2023Q4

REPORT INFORMATION
  Report Type: Report from Study
  Country: IT (occurrence: IT)
  Receive Date: 20230921
  Receipt Date: 20231018
  Transmission Date: 20240109
  Serious: Yes (Hospitalization)
  Sender: FDA-Public Use
  Company Number: None

PATIENT
  Age: 1 Year
  Sex: Male
  Weight: 10 kg

DRUGS (3)
  1. IDARUBICIN [Suspect]
     Active Substance: IDARUBICIN
     Indication: Acute myeloid leukaemia
     Dosage: 4.5 MG, DAILY
     Route: 042
     Dates: start: 20230901, end: 20230903
  2. CYTARABINE [Suspect]
     Active Substance: CYTARABINE
     Dosage: 80 MG, DAILY
     Route: 042
     Dates: start: 20230901, end: 20230907
  3. ETOPOSIDE [Suspect]
     Active Substance: ETOPOSIDE
     Indication: Acute myeloid leukaemia
     Dosage: 80 MG, DAILY
     Route: 042
     Dates: start: 20230901, end: 20230905

REACTIONS (3)
  - Febrile bone marrow aplasia [Recovered/Resolved]
  - Infantile diarrhoea [Recovered/Resolved]
  - Infantile vomiting [Recovered/Resolved]

NARRATIVE: CASE EVENT DATE: 20230909
